FAERS Safety Report 6159285-6 (Version None)
Quarter: 2009Q2

REPORT INFORMATION
  Report Type: 
  Country: None (occurrence: None)
  Receive Date: 20090414
  Receipt Date: 20090402
  Transmission Date: 20091009
  Serious: No
  Sender: FDA-Public Use
  Company Number: 2009-194413-NL

PATIENT
  Sex: Female

DRUGS (2)
  1. ETONOGESTREL [Suspect]
     Dosage: DF
     Dates: start: 20080401
  2. INSULIN [Concomitant]

REACTIONS (1)
  - RETINAL VEIN OCCLUSION [None]
